FAERS Safety Report 5234026-5 (Version None)
Quarter: 2007Q1

REPORT INFORMATION
  Report Type: 
  Country: None (occurrence: None)
  Receive Date: 20070208
  Receipt Date: 20070202
  Transmission Date: 20070707
  Serious: Yes (Other)
  Sender: FDA-Public Use
  Company Number: US-BRISTOL-MYERS SQUIBB COMPANY-13669098

PATIENT
  Age: 60 Year
  Sex: Male
  Weight: 70 kg

DRUGS (5)
  1. DIDANOSINE [Suspect]
     Indication: HIV INFECTION
  2. TENOFOVIR [Suspect]
     Indication: HIV INFECTION
  3. RITONAVIR [Suspect]
     Indication: HIV INFECTION
  4. LOPINAVIR [Suspect]
     Indication: HIV INFECTION
  5. SAQUINAVIR [Suspect]
     Indication: HIV INFECTION

REACTIONS (2)
  - HYPOKALAEMIA [None]
  - NEPHROPATHY TOXIC [None]
